FAERS Safety Report 21500114 (Version 1)
Quarter: 2022Q4

REPORT INFORMATION
  Report Type: Spontaneous
  Country: CN (occurrence: CN)
  Receive Date: 20221024
  Receipt Date: 20221024
  Transmission Date: 20230113
  Serious: Yes (Life-Threatening)
  Sender: FDA-Public Use
  Company Number: CN-009507513-2210CHN007495

PATIENT
  Age: 79 Year
  Sex: Male
  Weight: 61 kg

DRUGS (2)
  1. INVANZ [Suspect]
     Active Substance: ERTAPENEM SODIUM
     Indication: Nephrolithiasis
     Dosage: 1.0G, QD
     Route: 041
     Dates: start: 20221018, end: 20221018
  2. SODIUM CHLORIDE [Concomitant]
     Active Substance: SODIUM CHLORIDE
     Indication: Nephrolithiasis
     Dosage: 100ML, QD
     Route: 041
     Dates: start: 20221018, end: 20221018

REACTIONS (3)
  - Blood pressure decreased [Recovering/Resolving]
  - Drug hypersensitivity [Unknown]
  - Product use in unapproved indication [Unknown]

NARRATIVE: CASE EVENT DATE: 20221018
